FAERS Safety Report 4971284-6 (Version None)
Quarter: 2006Q2

REPORT INFORMATION
  Report Type: 
  Country: None (occurrence: None)
  Receive Date: 20060413
  Receipt Date: 20050321
  Transmission Date: 20061013
  Serious: Yes (Hospitalization, Other)
  Sender: FDA-Public Use
  Company Number: US-MERCK-0503USA03549

PATIENT
  Age: 78 Year
  Sex: Female
  Weight: 75 kg

DRUGS (1)
  1. VIOXX [Suspect]
     Indication: PAIN
     Route: 048
     Dates: start: 19990101, end: 20040101

REACTIONS (10)
  - APHASIA [None]
  - BREAST MASS [None]
  - CEREBROVASCULAR ACCIDENT [None]
  - COLONIC POLYP [None]
  - DEHYDRATION [None]
  - HEMIPARESIS [None]
  - NASAL SEPTUM DISORDER [None]
  - PYREXIA [None]
  - SCIATICA [None]
  - VOMITING [None]
